FAERS Safety Report 5056045-4 (Version None)
Quarter: 2006Q3

REPORT INFORMATION
  Report Type: 
  Country: None (occurrence: None)
  Receive Date: 20060717
  Receipt Date: 20060717
  Transmission Date: 20061208
  Serious: Yes (Hospitalization)
  Sender: FDA-Public Use
  Company Number: None

PATIENT
  Sex: Male
  Weight: 106 kg

DRUGS (13)
  1. IRINOTECAN HCL [Suspect]
     Indication: GLIOBLASTOMA MULTIFORME
     Dosage: 125MG/M2   DAY 1, 8, 22, 29  IV
     Route: 042
     Dates: start: 20060420
  2. IRINOTECAN HCL [Suspect]
     Indication: GLIOBLASTOMA MULTIFORME
     Dosage: 125MG/M2   DAY 1, 8, 22, 29  IV
     Route: 042
     Dates: start: 20060427
  3. IRINOTECAN HCL [Suspect]
     Indication: GLIOBLASTOMA MULTIFORME
     Dosage: 125MG/M2   DAY 1, 8, 22, 29  IV
     Route: 042
     Dates: start: 20060511
  4. TEMODAR [Suspect]
     Indication: GLIOBLASTOMA MULTIFORME
     Dosage: 200MG/M2   DAYS 1-5   PO
     Route: 048
     Dates: start: 20060420, end: 20060424
  5. WELLBUTRIN [Concomitant]
  6. DECADRON [Concomitant]
  7. PROVIGIL [Concomitant]
  8. XANAX [Concomitant]
  9. PROTONIX [Concomitant]
  10. LISINOPRIL [Concomitant]
  11. ZANTAC [Concomitant]
  12. OXYCODONE HCL [Concomitant]
  13. FLEXERIL [Concomitant]

REACTIONS (7)
  - ASTHENIA [None]
  - BLOOD TEST ABNORMAL [None]
  - CONVULSION [None]
  - DISEASE PROGRESSION [None]
  - FATIGUE [None]
  - INVESTIGATION ABNORMAL [None]
  - SOMNOLENCE [None]
